FAERS Safety Report 16071975 (Version 2)
Quarter: 2019Q2

REPORT INFORMATION
  Report Type: Spontaneous
  Country: SI (occurrence: SI)
  Receive Date: 20190314
  Receipt Date: 20190401
  Transmission Date: 20190711
  Serious: Yes (Death, Hospitalization)
  Sender: FDA-Public Use
  Company Number: SI-ELI_LILLY_AND_COMPANY-SI201903004978

PATIENT
  Age: 30 Year
  Sex: Female

DRUGS (2)
  1. EFECTIN ER [Suspect]
     Active Substance: VENLAFAXINE HYDROCHLORIDE
     Indication: DEPRESSION
     Dosage: UNK, UNKNOWN
     Route: 065
  2. CYMBALTA [Suspect]
     Active Substance: DULOXETINE HYDROCHLORIDE
     Indication: DEPRESSION
     Dosage: UNK, UNKNOWN
     Route: 065

REACTIONS (4)
  - Suicide attempt [Fatal]
  - Toxicity to various agents [Fatal]
  - Overdose [Fatal]
  - Serotonin syndrome [Fatal]
